FAERS Safety Report 8403145-4 (Version None)
Quarter: 2012Q2

REPORT INFORMATION
  Report Type: 
  Country: None (occurrence: None)
  Receive Date: 20120601
  Receipt Date: 20120525
  Transmission Date: 20120825
  Serious: Yes (Other)
  Sender: FDA-Public Use
  Company Number: DE-ELI_LILLY_AND_COMPANY-DE201205009418

PATIENT
  Age: 75 Year
  Sex: Female

DRUGS (1)
  1. EFFIENT [Suspect]
     Indication: STENT PLACEMENT
     Dosage: 5 MG, UNK
     Route: 048

REACTIONS (3)
  - ATRIAL FIBRILLATION [None]
  - HAEMORRHAGE [None]
  - CEREBROVASCULAR ACCIDENT [None]
